FAERS Safety Report 13417019 (Version 3)
Quarter: 2017Q2

REPORT INFORMATION
  Report Type: Report from Study
  Country: GB (occurrence: GB)
  Receive Date: 20170407
  Receipt Date: 20170516
  Transmission Date: 20170830
  Serious: No
  Sender: FDA-Public Use
  Company Number: GB-OTSUKA-2017_005409

PATIENT
  Age: 45 Year
  Sex: Female

DRUGS (7)
  1. TOLVAPTAN [Suspect]
     Active Substance: TOLVAPTAN
     Dosage: 15 MG, QD (IN EVENING) (TOLVAPTAN TITRATION)
     Route: 048
     Dates: start: 20150612, end: 20150619
  2. TOLVAPTAN [Suspect]
     Active Substance: TOLVAPTAN
     Dosage: 60 MG, QD (IN MORNING)
     Route: 048
     Dates: start: 20150625
  3. TOLVAPTAN [Suspect]
     Active Substance: TOLVAPTAN
     Dosage: QD (PLACEBO RUN IN) (IN EVENING)
     Route: 048
     Dates: start: 20150605, end: 20150611
  4. TOLVAPTAN [Suspect]
     Active Substance: TOLVAPTAN
     Dosage: 30 MG, QD (IN EVENING)
     Route: 048
     Dates: start: 20150625
  5. TOLVAPTAN [Suspect]
     Active Substance: TOLVAPTAN
     Dosage: QD (PLACEBO RUN IN) (IN MORNING)
     Route: 048
     Dates: start: 20150605, end: 20150611
  6. TOLVAPTAN [Suspect]
     Active Substance: TOLVAPTAN
     Indication: CONGENITAL CYSTIC KIDNEY DISEASE
     Dosage: 30 MG, QD (IN MORNING) (TOLVAPTAN TITRATION)
     Route: 048
     Dates: start: 20150612, end: 20150619
  7. RAMIPRIL. [Concomitant]
     Active Substance: RAMIPRIL
     Indication: HYPERTENSION
     Dosage: 5 MG, QD
     Route: 048
     Dates: start: 20120301

REACTIONS (1)
  - Aspartate aminotransferase increased [Recovered/Resolved]

NARRATIVE: CASE EVENT DATE: 20150611
